FAERS Safety Report 6803087-1 (Version None)
Quarter: 2010Q2

REPORT INFORMATION
  Report Type: 
  Country: None (occurrence: None)
  Receive Date: 20100628
  Receipt Date: 20100617
  Transmission Date: 20101027
  Serious: Yes (Death)
  Sender: FDA-Public Use
  Company Number: JP-SANOFI-AVENTIS-2010SA035184

PATIENT
  Age: 68 Year
  Sex: Male
  Weight: 54 kg

DRUGS (12)
  1. OXALIPLATIN [Suspect]
     Indication: COLON CANCER
     Route: 041
     Dates: start: 20090909, end: 20090909
  2. OXALIPLATIN [Suspect]
     Route: 041
     Dates: start: 20100423, end: 20100423
  3. FLUOROURACIL [Suspect]
     Indication: COLON CANCER
     Route: 040
     Dates: start: 20090909, end: 20090909
  4. FLUOROURACIL [Suspect]
     Route: 040
     Dates: start: 20100423, end: 20100423
  5. FLUOROURACIL [Suspect]
     Route: 041
     Dates: start: 20090909, end: 20090909
  6. FLUOROURACIL [Suspect]
     Route: 041
     Dates: start: 20100423, end: 20100423
  7. AVASTIN [Suspect]
     Indication: COLON CANCER
     Route: 042
     Dates: start: 20090909, end: 20090909
  8. AVASTIN [Suspect]
     Route: 042
     Dates: start: 20100423, end: 20100423
  9. CALCIUM LEVOFOLINATE [Concomitant]
     Indication: COLON CANCER
     Route: 041
     Dates: start: 20090909, end: 20090909
  10. CALCIUM LEVOFOLINATE [Concomitant]
     Route: 041
     Dates: start: 20100423, end: 20100423
  11. GRANISETRON [Concomitant]
     Indication: PREMEDICATION
     Route: 041
     Dates: start: 20090909, end: 20100423
  12. DEXAMETHASONE SODIUM PHOSPHATE [Concomitant]
     Indication: PREMEDICATION
     Route: 041
     Dates: start: 20090909, end: 20100423

REACTIONS (1)
  - INTERSTITIAL LUNG DISEASE [None]
